FAERS Safety Report 25388652 (Version 2)
Quarter: 2025Q2

REPORT INFORMATION
  Report Type: Spontaneous
  Country: JP (occurrence: JP)
  Receive Date: 20250603
  Receipt Date: 20250613
  Transmission Date: 20250717
  Serious: Yes (Hospitalization, Other)
  Sender: ACCORD
  Company Number: JP-Accord-487560

PATIENT
  Age: 43 Year
  Sex: Female

DRUGS (3)
  1. MYCOPHENOLIC ACID [Suspect]
     Active Substance: MYCOPHENOLIC ACID
     Indication: Systemic lupus erythematosus
  2. TACROLIMUS [Suspect]
     Active Substance: TACROLIMUS
     Indication: Systemic lupus erythematosus
  3. PREDNISOLONE [Suspect]
     Active Substance: PREDNISOLONE
     Indication: Systemic lupus erythematosus

REACTIONS (6)
  - Viral vasculitis [Recovering/Resolving]
  - Cerebral infarction [Recovered/Resolved]
  - Varicella zoster virus infection [Recovered/Resolved]
  - Ischaemic stroke [Recovered/Resolved]
  - Arterial stenosis [Recovering/Resolving]
  - Infection reactivation [Recovered/Resolved]
